FAERS Safety Report 9444097 (Version 1)
Quarter: 2013Q3

REPORT INFORMATION
  Report Type: Spontaneous
  Country: TR (occurrence: TR)
  Receive Date: 20130807
  Receipt Date: 20130807
  Transmission Date: 20140515
  Serious: Yes (Hospitalization)
  Sender: FDA-Public Use
  Company Number: TR-PAR PHARMACEUTICAL, INC-2013SCPR006058

PATIENT
  Sex: 0

DRUGS (1)
  1. METRONIDAZOLE [Suspect]
     Indication: AMOEBIASIS
     Dosage: UNK, UNKNOWN
     Route: 048

REACTIONS (5)
  - Blindness [Recovered/Resolved]
  - Ataxia [Recovered/Resolved]
  - Vertigo [Recovered/Resolved]
  - Dizziness [Recovered/Resolved]
  - Headache [Recovered/Resolved]
